FAERS Safety Report 10756157 (Version 1)
Quarter: 2015Q1

REPORT INFORMATION
  Report Type: Spontaneous
  Country: GH (occurrence: GH)
  Receive Date: 20150202
  Receipt Date: 20150202
  Transmission Date: 20150721
  Serious: Yes (Hospitalization)
  Sender: FDA-Public Use
  Company Number: PHHY2015GH012408

PATIENT
  Age: 49 Year
  Sex: Female

DRUGS (1)
  1. CLOBETASOL PROPIONATE. [Suspect]
     Active Substance: CLOBETASOL PROPIONATE
     Indication: SKIN DISCOLOURATION

REACTIONS (13)
  - Abdominal distension [Recovered/Resolved]
  - Jaundice [Recovered/Resolved]
  - Postoperative wound infection [Recovered/Resolved]
  - Wound haemorrhage [Recovered/Resolved]
  - Aggression [Recovered/Resolved]
  - Contusion [Recovered/Resolved]
  - Pyrexia [Recovered/Resolved]
  - Polyuria [Recovered/Resolved]
  - Wound haematoma [Recovered/Resolved]
  - Dehydration [Recovered/Resolved]
  - Induration [Recovered/Resolved]
  - Skin striae [Recovered/Resolved]
  - Abdominal wall abscess [Recovered/Resolved]
